FAERS Safety Report 14432400 (Version 5)
Quarter: 2018Q2

REPORT INFORMATION
  Report Type: Spontaneous
  Country: CA (occurrence: CA)
  Receive Date: 20180124
  Receipt Date: 20180507
  Transmission Date: 20180711
  Serious: Yes (Other)
  Sender: FDA-Public Use
  Company Number: CA-CELLTRION INC.-2017CA009692

PATIENT

DRUGS (5)
  1. INFLECTRA [Suspect]
     Active Substance: INFLIXIMAB-DYYB
     Dosage: 300 MG UNK
     Route: 042
     Dates: start: 20180131
  2. INFLECTRA [Suspect]
     Active Substance: INFLIXIMAB-DYYB
     Dosage: 300 MG (EVERY 0,2,6 WEEKS)
     Route: 042
     Dates: start: 20180116
  3. INFLECTRA [Suspect]
     Active Substance: INFLIXIMAB-DYYB
     Dosage: 300 MG, (EVERY 0, 2, 6 WEEKS THEN EVERY 8 WEEKS)
     Route: 042
     Dates: start: 20180424
  4. INFLECTRA [Suspect]
     Active Substance: INFLIXIMAB-DYYB
     Indication: CROHN^S DISEASE
     Dosage: 300 MG,(EVERY0, 2,6 WEEKS, THEN EVERY 8 WEEKS)
     Route: 042
     Dates: start: 20170703
  5. INFLECTRA [Suspect]
     Active Substance: INFLIXIMAB-DYYB
     Dosage: 300 MG UNK
     Route: 042
     Dates: start: 20180227

REACTIONS (9)
  - Pulmonary function test decreased [Unknown]
  - Animal scratch [Not Recovered/Not Resolved]
  - Chills [Unknown]
  - Infected cyst [Not Recovered/Not Resolved]
  - Gastrointestinal disorder [Unknown]
  - Heart rate increased [Unknown]
  - Product use issue [Unknown]
  - Drug effect incomplete [Unknown]
  - Subcutaneous abscess [Not Recovered/Not Resolved]
